FAERS Safety Report 17464073 (Version 2)
Quarter: 2020Q1

REPORT INFORMATION
  Report Type: Spontaneous
  Country: US (occurrence: US)
  Receive Date: 20200226
  Receipt Date: 20200227
  Transmission Date: 20200409
  Serious: Yes (Hospitalization, Other)
  Sender: FDA-Public Use
  Company Number: US-PFIZER INC-2020084675

PATIENT
  Sex: Female

DRUGS (1)
  1. VANCOMYCIN HCL [Suspect]
     Active Substance: VANCOMYCIN HYDROCHLORIDE
     Indication: INFECTION
     Dosage: UNK
     Route: 042

REACTIONS (10)
  - Feeling hot [Unknown]
  - Near death experience [Unknown]
  - Drug ineffective [Unknown]
  - Skin disorder [Not Recovered/Not Resolved]
  - Heart rate increased [Unknown]
  - Renal disorder [Unknown]
  - Flushing [Unknown]
  - Liver injury [Unknown]
  - Skin laxity [Not Recovered/Not Resolved]
  - Erythema [Not Recovered/Not Resolved]
